FAERS Safety Report 25588226 (Version 1)
Quarter: 2025Q3

REPORT INFORMATION
  Report Type: Spontaneous
  Country: US (occurrence: US)
  Receive Date: 20250722
  Receipt Date: 20250722
  Transmission Date: 20251021
  Serious: No
  Sender: PRINSTON PHARMACEUTICAL
  Company Number: US-PRINSTON PHARMACEUTICAL INC.-2025PRN00131

PATIENT
  Sex: Male

DRUGS (1)
  1. VALSARTAN [Suspect]
     Active Substance: VALSARTAN

REACTIONS (7)
  - Gastrooesophageal reflux disease [Not Recovered/Not Resolved]
  - Blood cholesterol increased [Not Recovered/Not Resolved]
  - Biliary tract disorder [Not Recovered/Not Resolved]
  - Blood potassium increased [Not Recovered/Not Resolved]
  - Blood calcium increased [Not Recovered/Not Resolved]
  - Hepatic enzyme increased [Not Recovered/Not Resolved]
  - Product substitution issue [Not Recovered/Not Resolved]
